FAERS Safety Report 8312494-X (Version None)
Quarter: 2012Q2

REPORT INFORMATION
  Report Type: 
  Country: None (occurrence: None)
  Receive Date: 20120425
  Receipt Date: 20120420
  Transmission Date: 20120825
  Serious: Yes (Hospitalization)
  Sender: FDA-Public Use
  Company Number: US-MERCK-1204USA03214

PATIENT
  Age: 74 Year
  Sex: Female

DRUGS (3)
  1. METHOTREXATE [Concomitant]
     Route: 065
  2. JANUVIA [Suspect]
     Indication: DIABETES MELLITUS
     Route: 048
     Dates: start: 20120415, end: 20120416
  3. PLAQUENIL [Concomitant]
     Route: 065

REACTIONS (2)
  - ANGIOEDEMA [None]
  - DYSPNOEA [None]
